FAERS Safety Report 4398179-3 (Version None)
Quarter: 2004Q3

REPORT INFORMATION
  Report Type: 
  Country: None (occurrence: None)
  Receive Date: 20040714
  Receipt Date: 20040714
  Transmission Date: 20050211
  Serious: Yes (Hospitalization)
  Sender: FDA-Public Use
  Company Number: None

PATIENT
  Sex: Female
  Weight: 51.2565 kg

DRUGS (3)
  1. PARAPLATIN [Suspect]
     Indication: BREAST CANCER
     Dosage: 214 MG STAT INTRAVENOUS
     Route: 042
     Dates: start: 20040618, end: 20040618
  2. TAXOL [Concomitant]
  3. HERCEPTIN [Concomitant]

REACTIONS (4)
  - ANXIETY [None]
  - CONVULSION [None]
  - DIARRHOEA [None]
  - HEADACHE [None]
